FAERS Safety Report 9849473 (Version 1)
Quarter: 2014Q1

REPORT INFORMATION
  Report Type: Spontaneous
  Country: US (occurrence: None)
  Receive Date: 20140124
  Receipt Date: 20140124
  Transmission Date: 20141002
  Serious: Yes (Disabling)
  Sender: FDA-Public Use
  Company Number: None

PATIENT
  Age: 44 Year
  Sex: Female
  Weight: 81.65 kg

DRUGS (3)
  1. LUPRON [Suspect]
     Indication: MALAISE
     Dosage: 2-2009-10-200-?10 OR 11 2009
     Dates: start: 200902
  2. LUPRON [Suspect]
     Indication: ENDOMETRIOSIS
     Dosage: 2-2009-10-200-?10 OR 11 2009
     Dates: start: 200902
  3. LUPRON [Suspect]
     Indication: FIBROMA
     Dosage: 2-2009-10-200-?10 OR 11 2009
     Dates: start: 200902

REACTIONS (24)
  - Pain in extremity [None]
  - Pelvic pain [None]
  - Pain in extremity [None]
  - Back pain [None]
  - Gait disturbance [None]
  - Injection site pain [None]
  - Chills [None]
  - Alopecia [None]
  - Migraine [None]
  - Swelling [None]
  - Abdominal distension [None]
  - Facial pain [None]
  - Hypoaesthesia [None]
  - Injection site induration [None]
  - Dizziness [None]
  - Fatigue [None]
  - Nausea [None]
  - Vomiting [None]
  - Incontinence [None]
  - Groin pain [None]
  - Memory impairment [None]
  - Cognitive disorder [None]
  - Diarrhoea [None]
  - Disturbance in attention [None]
